FAERS Safety Report 8128373-7 (Version None)
Quarter: 2012Q1

REPORT INFORMATION
  Report Type: 
  Country: None (occurrence: None)
  Receive Date: 20120210
  Receipt Date: 20120208
  Transmission Date: 20120608
  Serious: Yes (Other)
  Sender: FDA-Public Use
  Company Number: US-AMGEN-USASP2012008769

PATIENT
  Age: 78 Year
  Sex: Female

DRUGS (12)
  1. ATENOLOL [Concomitant]
     Indication: TACHYCARDIA
     Dosage: 50 MG, UNK
  2. PANTOPRAZOLE [Concomitant]
  3. PROLIA [Suspect]
     Indication: OSTEOPOROSIS POSTMENOPAUSAL
     Dosage: 60 MG, Q6MO
     Dates: start: 20110501
  4. LIPITOR [Concomitant]
  5. VITAMIN D [Concomitant]
     Dosage: UNK MG, UNK
     Dates: end: 20111001
  6. PREDNISONE TAB [Concomitant]
  7. PATADAY [Concomitant]
  8. TRIAMCINOLONE                      /00031902/ [Concomitant]
     Indication: MULTIPLE ALLERGIES
  9. FOLIC ACID W/VITAMIN B12 [Concomitant]
     Dates: end: 20111001
  10. ZYRTEC [Concomitant]
     Indication: MULTIPLE ALLERGIES
     Dosage: UNK UNK, QHS
  11. METHOTREXATE [Concomitant]
     Dates: end: 20111001
  12. LEVOTHYROXINE SODIUM [Concomitant]
     Dosage: UNK

REACTIONS (9)
  - GASTROOESOPHAGEAL REFLUX DISEASE [None]
  - TACHYCARDIA [None]
  - PAROSMIA [None]
  - HYPOPHAGIA [None]
  - ABDOMINAL DISCOMFORT [None]
  - PALPITATIONS [None]
  - CHEST DISCOMFORT [None]
  - MALAISE [None]
  - NAUSEA [None]
